FAERS Safety Report 21557062 (Version 1)
Quarter: 2022Q4

REPORT INFORMATION
  Report Type: Spontaneous
  Country: US (occurrence: US)
  Receive Date: 20221104
  Receipt Date: 20221104
  Transmission Date: 20230113
  Serious: No
  Sender: FDA-Public Use
  Company Number: US-VERTEX PHARMACEUTICALS-2022-016206

PATIENT
  Sex: Female

DRUGS (5)
  1. TRIKAFTA [Suspect]
     Active Substance: ELEXACAFTOR\IVACAFTOR\TEZACAFTOR
     Indication: Cystic fibrosis
     Dosage: UNKNOWN DOSAGE REGIMEN
     Route: 048
     Dates: start: 2019
  2. TRIKAFTA [Suspect]
     Active Substance: ELEXACAFTOR\IVACAFTOR\TEZACAFTOR
     Dosage: ONE ORANGE TABLET AM
     Route: 048
     Dates: start: 20220927
  3. TRIKAFTA [Suspect]
     Active Substance: ELEXACAFTOR\IVACAFTOR\TEZACAFTOR
     Dosage: ONE ORANGE TABLET AM AND BLUE TABLET PM
     Route: 048
     Dates: start: 20221017, end: 20221024
  4. PREDNISONE [Suspect]
     Active Substance: PREDNISONE
     Indication: Product used for unknown indication
     Route: 065
  5. SEROQUEL [Concomitant]
     Active Substance: QUETIAPINE FUMARATE
     Indication: Depression

REACTIONS (24)
  - Hypotension [Unknown]
  - Tachycardia [Unknown]
  - Presyncope [Unknown]
  - Sedation [Unknown]
  - Frustration tolerance decreased [Not Recovered/Not Resolved]
  - Fatigue [Unknown]
  - Pharyngeal paraesthesia [Unknown]
  - Throat irritation [Unknown]
  - Flushing [Recovering/Resolving]
  - Gastrooesophageal reflux disease [Unknown]
  - Chest pain [Unknown]
  - Productive cough [Unknown]
  - Nausea [Unknown]
  - Asthenia [Unknown]
  - Dehydration [Unknown]
  - Poor venous access [Unknown]
  - Wheezing [Unknown]
  - Dizziness [Unknown]
  - Abdominal pain upper [Not Recovered/Not Resolved]
  - Headache [Unknown]
  - Urinary tract infection [Unknown]
  - Acute sinusitis [Unknown]
  - Depression [Unknown]
  - Anxiety [Recovered/Resolved]

NARRATIVE: CASE EVENT DATE: 20220101
